FAERS Safety Report 6834104-0 (Version None)
Quarter: 2010Q3

REPORT INFORMATION
  Report Type: 
  Country: None (occurrence: None)
  Receive Date: 20100712
  Receipt Date: 20070608
  Transmission Date: 20110219
  Serious: No
  Sender: FDA-Public Use
  Company Number: US-PFIZER INC-2007029116

PATIENT
  Sex: Male
  Weight: 117.93 kg

DRUGS (8)
  1. CHANTIX [Suspect]
     Indication: SMOKING CESSATION THERAPY
     Dates: start: 20070309
  2. OTHER RESPIRATORY SYSTEM PRODUCTS [Suspect]
  3. TERAZOSIN HCL [Concomitant]
  4. SPIRONOLACTONE [Concomitant]
  5. THYROID TAB [Concomitant]
  6. EFFEXOR [Concomitant]
  7. METOPROLOL [Concomitant]
  8. BENAZEPRIL HYDROCHLORIDE [Concomitant]

REACTIONS (4)
  - CHEST DISCOMFORT [None]
  - DRUG INEFFECTIVE [None]
  - INCORRECT DRUG ADMINISTRATION DURATION [None]
  - OEDEMA PERIPHERAL [None]
